FAERS Safety Report 16875198 (Version 1)
Quarter: 2019Q4

REPORT INFORMATION
  Report Type: Spontaneous
  Country: US (occurrence: US)
  Receive Date: 20191001
  Receipt Date: 20191001
  Transmission Date: 20200122
  Serious: No
  Sender: FDA-Public Use
  Company Number: US-JUBILANT PHARMA LTD-2019US000977

PATIENT
  Age: 77 Year
  Sex: Female

DRUGS (2)
  1. RUBY-FILL [Suspect]
     Active Substance: RUBIDIUM CHLORIDE RB-82
     Indication: SCAN MYOCARDIAL PERFUSION
     Dosage: 18.44 MCI, REST
     Dates: start: 20190917, end: 20190917
  2. RUBY-FILL [Suspect]
     Active Substance: RUBIDIUM CHLORIDE RB-82
     Dosage: 18.39 MCI, STRESS
     Dates: start: 20190917, end: 20190917

REACTIONS (1)
  - Product preparation error [Unknown]

NARRATIVE: CASE EVENT DATE: 20190917
